FAERS Safety Report 18291889 (Version 3)
Quarter: 2020Q3

REPORT INFORMATION
  Report Type: Spontaneous
  Country: NL (occurrence: NL)
  Receive Date: 20200922
  Receipt Date: 20200928
  Transmission Date: 20201103
  Serious: No
  Sender: FDA-Public Use
  Company Number: NL-ROCHE-2680052

PATIENT

DRUGS (1)
  1. OCREVUS [Suspect]
     Active Substance: OCRELIZUMAB
     Indication: PRIMARY PROGRESSIVE MULTIPLE SCLEROSIS
     Dosage: 2 WITH TIMES BEGINNING DOSE?SECOND INFUSION WAS RECEIVED ON 30/JAN/2020
     Route: 065
     Dates: start: 20200116

REACTIONS (1)
  - Oral herpes [Unknown]
